FAERS Safety Report 15517299 (Version 1)
Quarter: 2018Q4

REPORT INFORMATION
  Report Type: Report from Study
  Country: US (occurrence: US)
  Receive Date: 20181017
  Receipt Date: 20181017
  Transmission Date: 20190205
  Serious: No
  Sender: FDA-Public Use
  Company Number: PHHY2018US127701

PATIENT
  Sex: Female

DRUGS (1)
  1. GILENYA [Suspect]
     Active Substance: FINGOLIMOD HYDROCHLORIDE
     Indication: MULTIPLE SCLEROSIS
     Dosage: 0.5 MG, QD
     Route: 048
     Dates: start: 20180531

REACTIONS (10)
  - Eye disorder [Unknown]
  - Weight decreased [Unknown]
  - Nausea [Unknown]
  - Diarrhoea [Unknown]
  - Hypoaesthesia [Unknown]
  - Influenza [Recovering/Resolving]
  - Vomiting [Unknown]
  - Eating disorder [Unknown]
  - Nasopharyngitis [Recovering/Resolving]
  - Weight increased [Unknown]
